FAERS Safety Report 16040931 (Version 1)
Quarter: 2019Q1

REPORT INFORMATION
  Report Type: Spontaneous
  Country: US (occurrence: US)
  Receive Date: 20190306
  Receipt Date: 20190306
  Transmission Date: 20190418
  Serious: No
  Sender: FDA-Public Use
  Company Number: US-AKORN PHARMACEUTICALS-2018AKN02088

PATIENT
  Age: 16 Year
  Sex: Female
  Weight: 75.8 kg

DRUGS (6)
  1. MYORISAN [Suspect]
     Active Substance: ISOTRETINOIN
     Indication: ACNE
     Dosage: 30 MG, 2X/DAY
     Dates: start: 20181029, end: 20181121
  2. MYORISAN [Suspect]
     Active Substance: ISOTRETINOIN
     Indication: SCAR
  3. MYORISAN [Suspect]
     Active Substance: ISOTRETINOIN
     Indication: ACNE
     Dosage: 40 MG, 2X/DAY
     Dates: start: 20181004, end: 201810
  4. MYORISAN [Suspect]
     Active Substance: ISOTRETINOIN
     Indication: SCAR
  5. KETOCONAZOLE. [Concomitant]
     Active Substance: KETOCONAZOLE
  6. CLINDAMYCIN PHOSPHATE. [Concomitant]
     Active Substance: CLINDAMYCIN PHOSPHATE

REACTIONS (2)
  - Aspartate aminotransferase increased [Recovering/Resolving]
  - Alanine aminotransferase increased [Recovering/Resolving]

NARRATIVE: CASE EVENT DATE: 201810
